FAERS Safety Report 9236835 (Version 1)
Quarter: 2013Q2

REPORT INFORMATION
  Report Type: Spontaneous
  Country: US (occurrence: US)
  Receive Date: 20130417
  Receipt Date: 20130417
  Transmission Date: 20140414
  Serious: Yes (Death, Life-Threatening, Hospitalization, Other)
  Sender: FDA-Public Use
  Company Number: US-ROXANE LABORATORIES, INC.-2013-RO-00475RO

PATIENT
  Age: 26 Year
  Sex: Female

DRUGS (2)
  1. MYCOPHENOLATE MOFETIL [Suspect]
     Indication: IMMUNOSUPPRESSANT DRUG THERAPY
     Dosage: 1000 MG
     Route: 048
  2. AZITHROMYCIN [Suspect]
     Route: 048

REACTIONS (5)
  - Death [Fatal]
  - Multi-organ failure [Unknown]
  - Bacteraemia [Recovered/Resolved]
  - Ascites [Unknown]
  - Intestinal obstruction [Unknown]
